FAERS Safety Report 7241591-5 (Version None)
Quarter: 2011Q1

REPORT INFORMATION
  Report Type: 
  Country: None (occurrence: None)
  Receive Date: 20110124
  Receipt Date: 20110112
  Transmission Date: 20110831
  Serious: Yes (Hospitalization, Other)
  Sender: FDA-Public Use
  Company Number: US-MERCK-1008USA04021

PATIENT
  Age: 55 Year
  Sex: Female
  Weight: 78 kg

DRUGS (4)
  1. FOSAMAX [Suspect]
     Route: 048
     Dates: start: 20001102, end: 20011114
  2. FOSAMAX [Suspect]
     Route: 048
     Dates: start: 20080403, end: 20090210
  3. FOSAMAX [Suspect]
     Indication: OSTEOPOROSIS
     Route: 048
     Dates: start: 20011217, end: 20090303
  4. CORTICOSTEROIDS (UNSPECIFIED) [Concomitant]
     Route: 065
     Dates: start: 19920101, end: 20100101

REACTIONS (63)
  - CARDIAC FAILURE CONGESTIVE [None]
  - BLOOD CREATININE INCREASED [None]
  - VOMITING [None]
  - DYSPNOEA [None]
  - DIARRHOEA [None]
  - DEHYDRATION [None]
  - ARTHRALGIA [None]
  - URINARY TRACT INFECTION [None]
  - ERYTHEMA [None]
  - RECTOCELE REPAIR [None]
  - FRACTURE NONUNION [None]
  - SPINAL COLUMN STENOSIS [None]
  - BLOOD CHOLESTEROL INCREASED [None]
  - ADVERSE DRUG REACTION [None]
  - BACK DISORDER [None]
  - ESSENTIAL TREMOR [None]
  - TREATMENT NONCOMPLIANCE [None]
  - SKIN INFECTION [None]
  - BACK PAIN [None]
  - PRURITUS ALLERGIC [None]
  - IMPAIRED HEALING [None]
  - BLOOD UREA INCREASED [None]
  - BONE DISORDER [None]
  - TENDONITIS [None]
  - MUSCULOSKELETAL CHEST PAIN [None]
  - HYPERTENSION [None]
  - FRACTURE [None]
  - DYSLIPIDAEMIA [None]
  - GASTROOESOPHAGEAL REFLUX DISEASE [None]
  - SQUAMOUS CELL CARCINOMA [None]
  - NAUSEA [None]
  - SKIN IRRITATION [None]
  - VITAMIN D DEFICIENCY [None]
  - MENOPAUSAL SYMPTOMS [None]
  - HYPOGLYCAEMIA [None]
  - FOOT DEFORMITY [None]
  - GOUT [None]
  - COLON ADENOMA [None]
  - BRONCHITIS [None]
  - LIP NEOPLASM MALIGNANT STAGE UNSPECIFIED [None]
  - ASTHMA [None]
  - RHEUMATOID ARTHRITIS [None]
  - TYPE 2 DIABETES MELLITUS [None]
  - MYALGIA [None]
  - FEMUR FRACTURE [None]
  - DRUG ADMINISTRATION ERROR [None]
  - PAIN [None]
  - CARCINOMA IN SITU OF SKIN [None]
  - DEEP VEIN THROMBOSIS [None]
  - GASTROENTERITIS VIRAL [None]
  - PULMONARY EMBOLISM [None]
  - RENAL FAILURE ACUTE [None]
  - LEUKOPENIA [None]
  - FATIGUE [None]
  - DIABETES MELLITUS [None]
  - OSTEOARTHRITIS [None]
  - BLOOD TRIGLYCERIDES INCREASED [None]
  - FLUID OVERLOAD [None]
  - BLOOD URIC ACID INCREASED [None]
  - MUSCULAR WEAKNESS [None]
  - LATEX ALLERGY [None]
  - PARKINSONISM [None]
  - INFECTION [None]
